FAERS Safety Report 6915681-8 (Version None)
Quarter: 2010Q3

REPORT INFORMATION
  Report Type: 
  Country: None (occurrence: None)
  Receive Date: 20100810
  Receipt Date: 20100802
  Transmission Date: 20110219
  Serious: Yes (Hospitalization)
  Sender: FDA-Public Use
  Company Number: IT-JNJFOC-20100700101

PATIENT
  Sex: Male

DRUGS (2)
  1. CAELYX [Suspect]
     Indication: PRODUCT USED FOR UNKNOWN INDICATION
     Route: 042
  2. UNKNOWN MEDICATION [Concomitant]
     Route: 065

REACTIONS (1)
  - HEPATITIS B [None]
